FAERS Safety Report 6199044-1 (Version None)
Quarter: 2009Q2

REPORT INFORMATION
  Report Type: 
  Country: None (occurrence: None)
  Receive Date: 20090522
  Receipt Date: 20090519
  Transmission Date: 20091009
  Serious: Yes (Hospitalization)
  Sender: FDA-Public Use
  Company Number: PHHY2009IT18540

PATIENT
  Sex: Female

DRUGS (2)
  1. TEGRETOL [Suspect]
     Route: 048
  2. TEGRETOL [Suspect]
     Dosage: 5400 MG
     Route: 048
     Dates: start: 20090420, end: 20090420

REACTIONS (6)
  - ACCIDENTAL OVERDOSE [None]
  - DRUG LEVEL INCREASED [None]
  - ERYTHEMA [None]
  - GASTRIC LAVAGE [None]
  - HYPOTONIA [None]
  - SOPOR [None]
